FAERS Safety Report 24760126 (Version 1)
Quarter: 2024Q4

REPORT INFORMATION
  Report Type: Spontaneous
  Country: US (occurrence: US)
  Receive Date: 20241220
  Receipt Date: 20241220
  Transmission Date: 20250114
  Serious: No
  Sender: JUBILANT
  Company Number: US-JUBILANT CADISTA PHARMACEUTICALS INC.-2024JUB00024

PATIENT
  Age: 54 Year
  Sex: Male
  Weight: 88.435 kg

DRUGS (1)
  1. METHYLPREDNISOLONE [Suspect]
     Active Substance: METHYLPREDNISOLONE
     Indication: Ear pain
     Dosage: AS DIRECTED
     Route: 048
     Dates: start: 20240305, end: 20240310

REACTIONS (1)
  - Tinnitus [Not Recovered/Not Resolved]

NARRATIVE: CASE EVENT DATE: 20240306
